FAERS Safety Report 22071793 (Version 4)
Quarter: 2025Q4

REPORT INFORMATION
  Report Type: Spontaneous
  Country: US (occurrence: US)
  Receive Date: 20230307
  Receipt Date: 20251217
  Transmission Date: 20260117
  Serious: Yes (Other)
  Sender: INCYTE
  Company Number: US-INCYTE CORPORATION-2023IN002126

PATIENT
  Age: 63 Year

DRUGS (3)
  1. JAKAFI [Suspect]
     Active Substance: RUXOLITINIB
     Indication: Polycythaemia vera
     Dosage: 10 MILLIGRAM, BID
     Route: 061
  2. JAKAFI [Suspect]
     Active Substance: RUXOLITINIB
     Indication: Monoclonal gammopathy
     Dosage: 10 MILLIGRAM, BID
     Route: 061
  3. JAKAFI [Suspect]
     Active Substance: RUXOLITINIB
     Dosage: 20 MILLIGRAM, BID
     Route: 061

REACTIONS (3)
  - Neuropathy peripheral [Unknown]
  - Fatigue [Unknown]
  - Off label use [Unknown]
